FAERS Safety Report 24131910 (Version 5)
Quarter: 2024Q4

REPORT INFORMATION
  Report Type: Spontaneous
  Country: US (occurrence: US)
  Receive Date: 20240724
  Receipt Date: 20241119
  Transmission Date: 20250114
  Serious: No
  Sender: PFIZER
  Company Number: US-PFIZER INC-202400216632

PATIENT
  Age: 13 Year
  Sex: Female

DRUGS (1)
  1. GENOTROPIN [Suspect]
     Active Substance: SOMATROPIN
     Dosage: 1.6 MG 6 DAY PER WEEK

REACTIONS (4)
  - Poor quality device used [Unknown]
  - Device use error [Unknown]
  - Device mechanical issue [Unknown]
  - Device breakage [Unknown]
